FAERS Safety Report 9627141 (Version 2)
Quarter: 2013Q4

REPORT INFORMATION
  Report Type: Report from Study
  Country: BR (occurrence: BR)
  Receive Date: 20131016
  Receipt Date: 20131114
  Transmission Date: 20140711
  Serious: Yes (Hospitalization, Other)
  Sender: FDA-Public Use
  Company Number: PHHY2013BR116099

PATIENT
  Sex: Male
  Weight: 50 kg

DRUGS (7)
  1. EXELON PATCH [Suspect]
     Indication: AMNESIA
     Dosage: 4.6 MG, QD (4.6 MG EVERY 24 HOURS)
     Route: 062
  2. CITALOPRAM [Suspect]
     Dosage: UNK UKN, UNK
  3. CLONAZEPAM [Concomitant]
     Indication: RELAXATION THERAPY
     Dosage: 2 MG, DAILY
     Route: 048
  4. DIAZEPAM [Concomitant]
     Indication: SLEEP DISORDER THERAPY
     Dosage: 2 MG, DAILY
     Dates: end: 201309
  5. CLOZAPINE [Concomitant]
     Dosage: UNK UKN, UNK
     Dates: end: 201309
  6. MULTIVITAMIN//VITAMINS NOS [Concomitant]
     Dosage: UNK UKN, UNK
     Dates: start: 201309
  7. VITAMAN [Concomitant]
     Indication: MULTI-VITAMIN DEFICIENCY
     Dosage: UNK UKN, UNK (1 APPLICATION)

REACTIONS (10)
  - Mental disorder [Recovered/Resolved]
  - Ischaemia [Recovered/Resolved]
  - Cardiac disorder [Recovered/Resolved]
  - Paralysis [Recovered/Resolved]
  - Hyperhidrosis [Recovered/Resolved]
  - Gait disturbance [Recovered/Resolved]
  - Movement disorder [Recovered/Resolved]
  - Insomnia [Recovered/Resolved]
  - Tremor [Recovered/Resolved]
  - Fatigue [Not Recovered/Not Resolved]
